FAERS Safety Report 9749228 (Version 1)
Quarter: 2013Q4

REPORT INFORMATION
  Report Type: Spontaneous
  Country: US (occurrence: US)
  Receive Date: 20131212
  Receipt Date: 20131212
  Transmission Date: 20140711
  Serious: No
  Sender: FDA-Public Use
  Company Number: US-INCYTE CORPORATION-2013IN002605

PATIENT
  Sex: Female
  Weight: 67.12 kg

DRUGS (15)
  1. JAKAFI [Suspect]
     Indication: ESSENTIAL THROMBOCYTHAEMIA
     Dosage: 25 MG, QD
     Route: 048
     Dates: start: 20130221
  2. ASPIRIN [Concomitant]
  3. ATENOLOL [Concomitant]
  4. DONEPEZIL [Concomitant]
  5. FUROSEMIDE [Concomitant]
  6. GLIMEPIRIDE [Concomitant]
  7. ISOSORBIDE MONONITRATE [Concomitant]
  8. LORAZEPAM [Concomitant]
  9. METFORMIN [Concomitant]
  10. OXYBUTYNIN [Concomitant]
  11. POTASSIUM CHLORIDE [Concomitant]
  12. PRAVASTATIN [Concomitant]
  13. PREVACID [Concomitant]
  14. VENLAFAXINE [Concomitant]
  15. ZETIA [Concomitant]

REACTIONS (1)
  - Adverse drug reaction [Unknown]
